FAERS Safety Report 9725288 (Version 2)
Quarter: 2013Q4

REPORT INFORMATION
  Report Type: Spontaneous
  Country: IT (occurrence: IT)
  Receive Date: 20131203
  Receipt Date: 20131206
  Transmission Date: 20140711
  Serious: Yes (Other)
  Sender: FDA-Public Use
  Company Number: IT-ASTRAZENECA-2013SE87767

PATIENT
  Age: 65 Year
  Sex: Male

DRUGS (6)
  1. BRILIQUE [Suspect]
     Indication: ACUTE CORONARY SYNDROME
     Dosage: 90 MG, 2 DF, LOADING DOSE
     Route: 048
  2. BRILIQUE [Suspect]
     Indication: ACUTE CORONARY SYNDROME
     Route: 048
     Dates: start: 20131119, end: 20131126
  3. ASPIRIN [Concomitant]
  4. APROVEL [Concomitant]
  5. CRESTOR [Concomitant]
     Route: 048
  6. SELOKEN [Concomitant]

REACTIONS (3)
  - Gout [Recovering/Resolving]
  - Arthralgia [Not Recovered/Not Resolved]
  - Gait disturbance [Not Recovered/Not Resolved]
